FAERS Safety Report 8982652 (Version 1)
Quarter: 2012Q4

REPORT INFORMATION
  Report Type: Report from Study
  Country: BR (occurrence: BR)
  Receive Date: 20121224
  Receipt Date: 20121224
  Transmission Date: 20130627
  Serious: Yes (Other)
  Sender: FDA-Public Use
  Company Number: BR-AMGEN-BRACT2011008216

PATIENT
  Age: 57 Year
  Sex: Female
  Weight: 67 kg

DRUGS (9)
  1. ETANERCEPT [Suspect]
     Indication: PSORIATIC ARTHROPATHY
     Dosage: 25 mg, 2x/week
     Route: 058
     Dates: start: 20080201
  2. ETANERCEPT [Suspect]
     Indication: RHEUMATOID ARTHRITIS
     Dosage: 50 mg, once weekly
     Route: 058
  3. OMEPRAZOL                          /00661201/ [Concomitant]
     Indication: ABDOMINAL DISCOMFORT
     Dosage: UNK
  4. CRESTOR [Concomitant]
     Dosage: UNK
  5. CALTRATE                           /00108001/ [Concomitant]
     Dosage: UNK
  6. ACTONEL [Concomitant]
     Dosage: UNK
  7. OMEPRAZOL                          /00661201/ [Concomitant]
     Indication: ABDOMINAL DISCOMFORT
     Dosage: UNK
  8. CALTRATE                           /00944201/ [Concomitant]
     Dosage: UNK
  9. ACICLOVIR [Concomitant]
     Dosage: UNK

REACTIONS (11)
  - Hyperglycaemia [Unknown]
  - Irritable bowel syndrome [Unknown]
  - Blood cholesterol increased [Unknown]
  - Immune system disorder [Unknown]
  - Nephrolithiasis [Unknown]
  - Application site pain [Unknown]
  - Sensation of heaviness [Unknown]
  - Drug ineffective [Unknown]
  - Herpes virus infection [Unknown]
  - Influenza [Unknown]
  - Psoriasis [Unknown]
